FAERS Safety Report 6923045-6 (Version None)
Quarter: 2010Q3

REPORT INFORMATION
  Report Type: 
  Country: None (occurrence: None)
  Receive Date: 20100813
  Receipt Date: 20100503
  Transmission Date: 20110219
  Serious: Yes (Death, Other)
  Sender: FDA-Public Use
  Company Number: DE-AMGEN-QUU429994

PATIENT
  Age: 73 Year
  Sex: Female

DRUGS (2)
  1. VECTIBIX [Suspect]
     Indication: COLORECTAL CANCER
     Dates: start: 20080601
  2. IRINOTECAN HCL [Concomitant]
     Dates: start: 20040201

REACTIONS (4)
  - DEATH [None]
  - MALIGNANT NEOPLASM PROGRESSION [None]
  - RASH [None]
  - SKIN TOXICITY [None]
